FAERS Safety Report 5280757-0 (Version None)
Quarter: 2007Q1

REPORT INFORMATION
  Report Type: 
  Country: None (occurrence: None)
  Receive Date: 20070329
  Receipt Date: 20070319
  Transmission Date: 20070707
  Serious: Yes (Death, Hospitalization, Other)
  Sender: FDA-Public Use
  Company Number: US-PFIZER INC-2007013556

PATIENT
  Sex: Male
  Weight: 106.6 kg

DRUGS (22)
  1. TIKOSYN [Suspect]
     Route: 048
  2. ADVAIR DISKUS 100/50 [Concomitant]
  3. ZYLOPRIM [Concomitant]
  4. ELAVIL [Concomitant]
  5. ASPIRIN [Concomitant]
  6. COUMADIN [Concomitant]
  7. LIPITOR [Concomitant]
  8. COREG [Concomitant]
  9. COLCHICINE [Concomitant]
  10. DIGOXIN [Concomitant]
  11. FOLIC ACID [Concomitant]
  12. DUONEB [Concomitant]
  13. NITROSTAT [Concomitant]
  14. PREDNISONE [Concomitant]
  15. ALDACTONE [Concomitant]
     Dates: end: 20070212
  16. TYLENOL [Concomitant]
  17. LASIX [Concomitant]
  18. ATROVENT [Concomitant]
  19. TRILEPTAL [Concomitant]
  20. MIRALAX [Concomitant]
  21. METAMUCIL ^SEARLE^ [Concomitant]
  22. ALTACE [Concomitant]

REACTIONS (31)
  - ANAEMIA [None]
  - ANXIETY [None]
  - ATRIAL NATRIURETIC PEPTIDE INCREASED [None]
  - BACTERIURIA [None]
  - BLOOD CREATININE INCREASED [None]
  - BRADYCARDIA [None]
  - CARDIAC FAILURE CONGESTIVE [None]
  - CARDIAC PACEMAKER INSERTION [None]
  - CAROTID ARTERY DISEASE [None]
  - CATARACT [None]
  - CEREBROVASCULAR ACCIDENT [None]
  - CHRONIC OBSTRUCTIVE PULMONARY DISEASE [None]
  - CONSTIPATION [None]
  - CORONARY ARTERY BYPASS [None]
  - CORONARY ARTERY DISEASE [None]
  - DEAFNESS NEUROSENSORY [None]
  - DEATH [None]
  - DEPRESSION [None]
  - GOUT [None]
  - HAEMATURIA [None]
  - MENTAL DISORDER [None]
  - MITRAL VALVE REPLACEMENT [None]
  - OBESITY [None]
  - OSTEOARTHRITIS [None]
  - PROSTATE CANCER [None]
  - PULMONARY HYPERTENSION [None]
  - PYURIA [None]
  - RENAL FAILURE CHRONIC [None]
  - RHEUMATIC HEART DISEASE [None]
  - SLEEP APNOEA SYNDROME [None]
  - SPINAL COLUMN STENOSIS [None]
